FAERS Safety Report 4772330-5 (Version None)
Quarter: 2005Q3

REPORT INFORMATION
  Report Type: 
  Country: None (occurrence: None)
  Receive Date: 20050919
  Receipt Date: 20041104
  Transmission Date: 20060218
  Serious: No
  Sender: FDA-Public Use
  Company Number: US-BRISTOL-MYERS SQUIBB COMPANY-12757043

PATIENT
  Sex: Female

DRUGS (2)
  1. TRIMOX [Suspect]
     Indication: INFECTION
     Route: 048
  2. BENADRYL [Concomitant]

REACTIONS (1)
  - SKIN IRRITATION [None]
